FAERS Safety Report 15183401 (Version 2)
Quarter: 2018Q3

REPORT INFORMATION
  Report Type: Report from Study
  Country: DE (occurrence: DE)
  Receive Date: 20180723
  Receipt Date: 20180814
  Transmission Date: 20181010
  Serious: Yes (Death, Hospitalization, Other)
  Sender: FDA-Public Use
  Company Number: DE-SA-2018SA126257

PATIENT
  Age: 66 Year
  Sex: Male
  Weight: 97 kg

DRUGS (16)
  1. CAPECITABINE. [Suspect]
     Active Substance: CAPECITABINE
     Indication: COLORECTAL CANCER
     Dosage: 4300 MG,Q3W
     Route: 048
     Dates: start: 20140508, end: 20140521
  2. BEVACIZUMAB. [Suspect]
     Active Substance: BEVACIZUMAB
     Indication: COLORECTAL CANCER METASTATIC
     Dosage: 485 UNK
     Route: 042
     Dates: start: 20130305, end: 20130305
  3. BEVACIZUMAB. [Suspect]
     Active Substance: BEVACIZUMAB
     Dosage: 485 MG, QOW
     Route: 042
     Dates: start: 20140128, end: 20140508
  4. BEVACIZUMAB. [Suspect]
     Active Substance: BEVACIZUMAB
     Dosage: 240 UNK
     Route: 042
     Dates: start: 20140226, end: 20140508
  5. FLUOROURACIL. [Suspect]
     Active Substance: FLUOROURACIL
     Indication: COLORECTAL CANCER
     Dosage: 855 MG,QOW
     Route: 040
     Dates: start: 20140107, end: 20140128
  6. FLUOROURACIL. [Suspect]
     Active Substance: FLUOROURACIL
     Dosage: 430 MBQ,UNK
     Route: 040
     Dates: start: 20140212, end: 20140305
  7. PANTOPRAZOLE [Concomitant]
     Active Substance: PANTOPRAZOLE
     Dosage: 40 MG,QD
     Route: 048
  8. FOLINIC ACID [Concomitant]
     Active Substance: LEUCOVORIN
     Indication: COLORECTAL CANCER
     Dosage: 855 MG,QOW
     Route: 042
     Dates: start: 20140107, end: 20140402
  9. EMEND [APREPITANT] [Concomitant]
     Dosage: 125/80 MG; DAY 1 UNTIL DAY 3 OF CYCLE
     Route: 048
     Dates: start: 20140107
  10. BEVACIZUMAB. [Suspect]
     Active Substance: BEVACIZUMAB
     Dosage: 4300 UNK
     Route: 042
     Dates: start: 20140226, end: 20140508
  11. OXALIPLATIN. [Suspect]
     Active Substance: OXALIPLATIN
     Indication: COLORECTAL CANCER
     Dosage: 214 MG,QOW
     Route: 042
     Dates: start: 20140107, end: 20140402
  12. OXALIPLATIN. [Suspect]
     Active Substance: OXALIPLATIN
     Dosage: 212 MG,QOW
     Route: 042
     Dates: start: 20140508, end: 20140515
  13. FLUOROURACIL. [Suspect]
     Active Substance: FLUOROURACIL
     Dosage: 5135 MG,QOW
     Route: 042
     Dates: start: 20140107, end: 20140402
  14. BEVACIZUMAB. [Suspect]
     Active Substance: BEVACIZUMAB
     Dosage: 720 UNK
     Route: 042
     Dates: start: 20140508, end: 20140508
  15. NEUPOGEN [Concomitant]
     Active Substance: FILGRASTIM
     Dosage: UNK UNK,UNK
  16. ALLOPURINOL. [Concomitant]
     Active Substance: ALLOPURINOL
     Dosage: 100 MG,QD
     Route: 048

REACTIONS (10)
  - Melaena [Unknown]
  - Polyneuropathy [Fatal]
  - Guillain-Barre syndrome [Not Recovered/Not Resolved]
  - Haemorrhoidal haemorrhage [Unknown]
  - Vomiting [Unknown]
  - General physical health deterioration [Fatal]
  - Device related infection [Recovered/Resolved]
  - Pyrexia [Recovered/Resolved]
  - Haematochezia [Unknown]
  - Diarrhoea [Unknown]

NARRATIVE: CASE EVENT DATE: 20140312
